FAERS Safety Report 8050744-8 (Version None)
Quarter: 2012Q1

REPORT INFORMATION
  Report Type: 
  Country: None (occurrence: None)
  Receive Date: 20120117
  Receipt Date: 20120117
  Transmission Date: 20120608
  Serious: Yes (Life-Threatening)
  Sender: FDA-Public Use
  Company Number: None

PATIENT
  Sex: Male
  Weight: 97.8 kg

DRUGS (1)
  1. WARFARIN SODIUM [Suspect]
     Dosage: 3MG
     Route: 048

REACTIONS (4)
  - GASTROENTERITIS VIRAL [None]
  - DIZZINESS [None]
  - HYPOTENSION [None]
  - PERICARDITIS [None]
